FAERS Safety Report 24037364 (Version 1)
Quarter: 2024Q3

REPORT INFORMATION
  Report Type: Spontaneous
  Country: US (occurrence: US)
  Receive Date: 20240702
  Receipt Date: 20240702
  Transmission Date: 20241016
  Serious: No
  Sender: AMGEN
  Company Number: US-AMGEN-USASP2024125923

PATIENT
  Age: 58 Year

DRUGS (8)
  1. APREMILAST [Suspect]
     Active Substance: APREMILAST
     Indication: Dermatitis atopic
     Dosage: UNK
     Route: 065
  2. APREMILAST [Suspect]
     Active Substance: APREMILAST
     Indication: Psoriasis
  3. GUSELKUMAB [Concomitant]
     Active Substance: GUSELKUMAB
     Dosage: UNK
  4. METHOTREXATE [Concomitant]
     Active Substance: METHOTREXATE
     Dosage: UNK
  5. ACITRETIN [Concomitant]
     Active Substance: ACITRETIN
     Dosage: UNK
  6. BRODALUMAB [Concomitant]
     Active Substance: BRODALUMAB
     Dosage: UNK
  7. IXEKIZUMAB [Concomitant]
     Active Substance: IXEKIZUMAB
     Dosage: UNK
  8. DEUCRAVACITINIB [Concomitant]
     Active Substance: DEUCRAVACITINIB
     Dosage: UNK

REACTIONS (1)
  - Drug ineffective [Unknown]
